FAERS Safety Report 7247028-4 (Version None)
Quarter: 2011Q1

REPORT INFORMATION
  Report Type: 
  Country: None (occurrence: None)
  Receive Date: 20110127
  Receipt Date: 20110119
  Transmission Date: 20110831
  Serious: Yes (Other)
  Sender: FDA-Public Use
  Company Number: FR-B.I. PHARMACEUTICALS,INC./RIDGEFIELD-2010-FF-01057FF

PATIENT
  Sex: Male

DRUGS (5)
  1. AZADOSE [Concomitant]
     Dates: start: 20100610
  2. VIRAMUNE [Suspect]
     Indication: HIV INFECTION
     Dosage: 200 MG
     Route: 048
     Dates: start: 20101129
  3. BACTRIM [Concomitant]
     Dates: start: 20100610
  4. VIRAMUNE [Suspect]
     Dosage: 400 MG
     Route: 048
     Dates: end: 20101223
  5. TRUVADA [Concomitant]
     Indication: HIV INFECTION
     Route: 048
     Dates: start: 20101129, end: 20101223

REACTIONS (1)
  - TOXIC SKIN ERUPTION [None]
